FAERS Safety Report 4338216-5 (Version None)
Quarter: 2004Q2

REPORT INFORMATION
  Report Type: 
  Country: None (occurrence: None)
  Receive Date: 20040409
  Receipt Date: 20040330
  Transmission Date: 20050107
  Serious: Yes (Hospitalization)
  Sender: FDA-Public Use
  Company Number: 04P-062-0255384-00

PATIENT
  Age: 15 Year
  Sex: Female

DRUGS (4)
  1. BIAXIN [Suspect]
     Indication: TONSILLITIS
     Dosage: PER ORAL
     Route: 048
     Dates: start: 20040325, end: 20040329
  2. LAMOTRIGINE [Concomitant]
  3. L-THYROXIN [Concomitant]
  4. CHLORAL HYDRATE [Concomitant]

REACTIONS (4)
  - AGGRESSION [None]
  - AGITATION [None]
  - ANXIETY [None]
  - SLEEP DISORDER [None]
